FAERS Safety Report 11877241 (Version 4)
Quarter: 2016Q2

REPORT INFORMATION
  Report Type: Spontaneous
  Country: US (occurrence: US)
  Receive Date: 20151229
  Receipt Date: 20160411
  Transmission Date: 20160815
  Serious: Yes (Hospitalization)
  Sender: FDA-Public Use
  Company Number: US-RARE DISEASE THERAPEUTICS, INC.-1045993

PATIENT
  Age: 7 Year
  Sex: Female
  Weight: 29.6 kg

DRUGS (5)
  1. HYDROXOCOBALAMIN [Concomitant]
     Active Substance: HYDROXOCOBALAMIN
  2. LEUCOVORIN. [Concomitant]
     Active Substance: LEUCOVORIN
  3. CYSTADANE [Suspect]
     Active Substance: BETAINE
     Indication: VITAMIN B12 DEFICIENCY
     Route: 048
     Dates: start: 20150723, end: 20151107
  4. CYSTADANE [Suspect]
     Active Substance: BETAINE
     Route: 048
     Dates: start: 20151214
  5. LEVOCARNITINE. [Concomitant]
     Active Substance: LEVOCARNITINE

REACTIONS (2)
  - Seizure [Unknown]
  - Appendicitis perforated [Recovered/Resolved]

NARRATIVE: CASE EVENT DATE: 20151107
